FAERS Safety Report 26138007 (Version 1)
Quarter: 2025Q4

REPORT INFORMATION
  Report Type: Spontaneous
  Country: US (occurrence: None)
  Receive Date: 20251210
  Receipt Date: 20251210
  Transmission Date: 20260118
  Serious: Yes (Other)
  Sender: DEXCEL LTD.
  Company Number: None

PATIENT
  Age: 76 Year
  Sex: Male

DRUGS (3)
  1. LIDOCAINE [Suspect]
     Active Substance: LIDOCAINE
     Indication: Back pain
     Dosage: ONE ML OF PRESERVATIVE-FREE LIDOCAINE 1%; AS A TEST DOSE ON LEFT SIDE AND THEN ON THE RIGHT SIDE
     Route: 008
     Dates: start: 202210
  2. DEXAMETHASONE [Suspect]
     Active Substance: DEXAMETHASONE
     Indication: Back pain
     Dosage: 7.5 MG PRESERVATIVE-FREE DEXAMETHASONE ON THE LEFT SIDE AND RIGHT SIDE ; IN TOTAL
     Route: 008
     Dates: start: 202210
  3. OMNIPAQUE [Concomitant]
     Active Substance: IOHEXOL
     Dosage: OMNIPAQUE 240 CONTRAST MEDIUM INJECTED UNDER DIGITAL SUBTRACTION IMAGING

REACTIONS (2)
  - Paraplegia [Recovered/Resolved]
  - Incorrect route of product administration [Recovered/Resolved]

NARRATIVE: CASE EVENT DATE: 20221001
